FAERS Safety Report 8390882-3 (Version None)
Quarter: 2012Q2

REPORT INFORMATION
  Report Type: 
  Country: None (occurrence: None)
  Receive Date: 20120529
  Receipt Date: 20120523
  Transmission Date: 20120825
  Serious: Yes (Hospitalization)
  Sender: FDA-Public Use
  Company Number: US-BAYER-2012-030195

PATIENT
  Age: 35 Year
  Sex: Female
  Weight: 140.59 kg

DRUGS (8)
  1. AZITHROMYCIN [Concomitant]
     Dosage: UNK
     Dates: start: 20090923, end: 20090927
  2. YASMIN [Suspect]
     Indication: ACNE
     Dosage: UNK
     Dates: start: 20090211, end: 20090926
  3. CRYSELLE [Concomitant]
     Dosage: UNK
     Dates: start: 20090917
  4. AMOXICILLIN [Concomitant]
     Dosage: 775 MG, UNK
     Dates: start: 20090916
  5. AMBIFED-G [Concomitant]
     Dosage: UNK
     Dates: start: 20090916
  6. YASMIN [Suspect]
     Indication: CONTRACEPTION
     Dosage: UNK
     Dates: start: 20040101, end: 20040101
  7. METRONIDAZOLE [Concomitant]
     Indication: VAGINAL DISORDER
     Dosage: 1 TABLET 2X DAILY
     Dates: start: 20090917, end: 20090922
  8. NAPROXEN (ALEVE) [Concomitant]
     Dosage: UNK UNK, PRN

REACTIONS (12)
  - PAIN IN EXTREMITY [None]
  - DEEP VEIN THROMBOSIS [None]
  - DYSPNOEA [None]
  - BONE PAIN [None]
  - EMOTIONAL DISORDER [None]
  - MUSCULOSKELETAL CHEST PAIN [None]
  - COUGH [None]
  - STRESS [None]
  - OEDEMA PERIPHERAL [None]
  - PULMONARY EMBOLISM [None]
  - VARICOSE VEIN [None]
  - CHEST PAIN [None]
